FAERS Safety Report 5867801-4 (Version None)
Quarter: 2008Q3

REPORT INFORMATION
  Report Type: 
  Country: None (occurrence: None)
  Receive Date: 20080902
  Receipt Date: 20080821
  Transmission Date: 20090109
  Serious: Yes (Other)
  Sender: FDA-Public Use
  Company Number: DE-PFIZER INC-2008070664

PATIENT
  Age: 46 Year
  Sex: Female

DRUGS (5)
  1. LONOLOX [Suspect]
     Indication: HYPERTENSION
     Route: 048
  2. AMARYL [Concomitant]
  3. ENOXAPARIN SODIUM [Concomitant]
  4. DIURETICS [Concomitant]
  5. BETA BLOCKING AGENTS [Concomitant]

REACTIONS (2)
  - ANAEMIA [None]
  - BLOOD CREATININE INCREASED [None]
